FAERS Safety Report 6992592-3 (Version None)
Quarter: 2010Q3

REPORT INFORMATION
  Report Type: 
  Country: None (occurrence: None)
  Receive Date: 20100917
  Receipt Date: 20100909
  Transmission Date: 20110219
  Serious: Yes (Death)
  Sender: FDA-Public Use
  Company Number: GB-TEVA-248125ISR

PATIENT
  Age: 41 Year
  Sex: Male

DRUGS (3)
  1. AMITRIPTYLINE HCL [Suspect]
  2. SERTRALINE HYDROCHLORIDE [Suspect]
  3. CLOZAPINE [Suspect]

REACTIONS (1)
  - GASTROINTESTINAL HYPOMOTILITY [None]
